FAERS Safety Report 9442850 (Version 3)
Quarter: 2013Q3

REPORT INFORMATION
  Report Type: Report from Study
  Country: US (occurrence: US)
  Receive Date: 20130806
  Receipt Date: 20130930
  Transmission Date: 20140515
  Serious: Yes (Hospitalization)
  Sender: FDA-Public Use
  Company Number: US-PFIZER INC-2013218616

PATIENT
  Age: 71 Year
  Sex: Male
  Weight: 74.7 kg

DRUGS (3)
  1. SUNITINIB MALATE [Suspect]
     Indication: METASTATIC RENAL CELL CARCINOMA
     Dosage: 50 MG, QD ON DAYS 1-28, CYCLIC
     Route: 048
     Dates: start: 20111219, end: 20130616
  2. PLAQUENIL [Suspect]
     Indication: METASTATIC RENAL CELL CARCINOMA
     Dosage: 200 MG, BID ON DAYS 4-42, CYCLIC
     Route: 048
     Dates: start: 20111219, end: 20130630
  3. LISINOPRIL [Concomitant]

REACTIONS (1)
  - Pneumonitis [Recovering/Resolving]
